FAERS Safety Report 8915409 (Version 1)
Quarter: 2012Q4

REPORT INFORMATION
  Report Type: 
  Country: SE (occurrence: SE)
  Receive Date: 20121119
  Receipt Date: 20121119
  Transmission Date: 20130627
  Serious: Yes (Hospitalization)
  Sender: FDA-Public Use
  Company Number: SE-PFIZER INC-2012285962

PATIENT
  Age: 34 Year
  Sex: Female
  Weight: 121.4 kg

DRUGS (14)
  1. GENOTROPIN [Suspect]
     Dosage: 1.2 mg, 1x/day, 7 injections/week
     Route: 058
     Dates: start: 19990128
  2. LEVOTHYROXINE [Concomitant]
     Indication: THYROID DISORDER
     Dosage: UNK
     Dates: start: 19860101
  3. LEVOTHYROXINE [Concomitant]
     Indication: PRIMARY HYPOTHYROIDISM
  4. DESMOPRESSIN [Concomitant]
     Indication: ADH DISORDER
     Dosage: UNK
     Dates: start: 19860101
  5. CYCLABIL [Concomitant]
     Indication: LUTEINISING HORMONE DEFICIENCY
     Dosage: UNK
     Dates: start: 19930101
  6. CYCLABIL [Concomitant]
     Indication: FOLLICLE-STIMULATING HORMONE DEFICIENCY
  7. CYCLABIL [Concomitant]
     Indication: OVARIAN DISORDER
  8. CYCLABIL [Concomitant]
     Indication: HYPOGONADISM
  9. TRIONETTA [Concomitant]
     Indication: LUTEINISING HORMONE DEFICIENCY
     Dosage: UNK
     Dates: start: 19990128
  10. TRIONETTA [Concomitant]
     Indication: FOLLICLE-STIMULATING HORMONE DEFICIENCY
  11. TRIONETTA [Concomitant]
     Indication: OVARIAN DISORDER
  12. TRIONETTA [Concomitant]
     Indication: HYPOGONADISM
  13. BUDESONIDE [Concomitant]
     Indication: RHINITIS
     Dosage: UNK
     Dates: start: 20030115
  14. TERBUTALINE [Concomitant]
     Indication: ASTHMA
     Dosage: UNK
     Dates: start: 20030212

REACTIONS (2)
  - Asthma [Unknown]
  - Influenza [Unknown]
